FAERS Safety Report 19912909 (Version 1)
Quarter: 2021Q4

REPORT INFORMATION
  Report Type: Report from Study
  Country: US (occurrence: US)
  Receive Date: 20211004
  Receipt Date: 20211004
  Transmission Date: 20220303
  Serious: Yes (Death, Other)
  Sender: FDA-Public Use
  Company Number: US-TAKEDA-2021TUS060936

PATIENT
  Age: 65 Year
  Sex: Male
  Weight: 71.2 kg

DRUGS (18)
  1. HUMAN IMMUNOGLOBULIN G [Suspect]
     Active Substance: HUMAN IMMUNOGLOBULIN G
     Indication: Encephalitis
     Dosage: 50 GRAM, Q4WEEKS
     Route: 042
     Dates: start: 20130408
  2. HUMAN IMMUNOGLOBULIN G [Suspect]
     Active Substance: HUMAN IMMUNOGLOBULIN G
     Indication: Encephalomyelitis
  3. ACETAMINOPHEN [Concomitant]
     Active Substance: ACETAMINOPHEN
  4. DIPHENHYDRAMINE [Concomitant]
     Active Substance: DIPHENHYDRAMINE
  5. HEPARIN [Concomitant]
     Active Substance: HEPARIN SODIUM
  6. LIDOCAINE [Concomitant]
     Active Substance: LIDOCAINE
  7. SODIUM CHLORIDE [Concomitant]
     Active Substance: SODIUM CHLORIDE
  8. EPINEPHRINE [Concomitant]
     Active Substance: EPINEPHRINE
  9. SYMBICORT [Concomitant]
     Active Substance: BUDESONIDE\FORMOTEROL FUMARATE DIHYDRATE
  10. ZITHROMAX [Concomitant]
     Active Substance: AZITHROMYCIN DIHYDRATE
  11. DIVALPROEX SODIUM [Concomitant]
     Active Substance: DIVALPROEX SODIUM
  12. SODIUM [Concomitant]
     Active Substance: SODIUM
  13. LEVETIRACETAM [Concomitant]
     Active Substance: LEVETIRACETAM
  14. ALBUTEROL [Concomitant]
     Active Substance: ALBUTEROL
  15. VIMPAT [Concomitant]
     Active Substance: LACOSAMIDE
  16. SEROQUEL XR [Concomitant]
     Active Substance: QUETIAPINE FUMARATE
  17. LORAZEPAM [Concomitant]
     Active Substance: LORAZEPAM
  18. LISINOPRIL [Concomitant]
     Active Substance: LISINOPRIL

REACTIONS (1)
  - Death [Fatal]

NARRATIVE: CASE EVENT DATE: 20210610
